FAERS Safety Report 20895156 (Version 4)
Quarter: 2022Q2

REPORT INFORMATION
  Report Type: Spontaneous
  Country: US (occurrence: US)
  Receive Date: 20220531
  Receipt Date: 20220609
  Transmission Date: 20220721
  Serious: No
  Sender: FDA-Public Use
  Company Number: US-AMGEN-USASP2022093324

PATIENT
  Age: 73 Year
  Sex: Female

DRUGS (19)
  1. OTEZLA [Suspect]
     Active Substance: APREMILAST
     Indication: Psoriasis
     Dosage: 30 MILLIGRAM, BID
     Route: 048
     Dates: start: 20190916
  2. OTEZLA [Suspect]
     Active Substance: APREMILAST
     Indication: Psoriatic arthropathy
  3. DOXYCYCLINE HYCLATE [Concomitant]
     Active Substance: DOXYCYCLINE HYCLATE
     Dosage: 100 MILLIGRAM
     Route: 065
  4. VITAMINS [Concomitant]
     Active Substance: VITAMINS
     Dosage: MULTIGUMMIES
     Route: 065
  5. VITAMIN A [Concomitant]
     Active Substance: VITAMIN A
     Route: 065
  6. VITAMIN C [Concomitant]
     Active Substance: ASCORBIC ACID
     Dosage: 500 MILLIGRAM
     Route: 065
  7. VITAMIN D [Concomitant]
     Active Substance: VITAMIN D NOS
     Route: 065
  8. VITAMIN E [Concomitant]
     Active Substance: .ALPHA.-TOCOPHEROL
     Route: 065
  9. ALPRAZOLAM [Concomitant]
     Active Substance: ALPRAZOLAM
  10. CALCIPOTRIENE [Concomitant]
     Active Substance: CALCIPOTRIENE
  11. LEVOTHYROXINE [Concomitant]
     Active Substance: LEVOTHYROXINE
  12. METOPROLOL [Concomitant]
     Active Substance: METOPROLOL
  13. FUROSEMIDE [Concomitant]
     Active Substance: FUROSEMIDE
  14. FEBUXOSTAT [Concomitant]
     Active Substance: FEBUXOSTAT
  15. JANUVIA [Concomitant]
     Active Substance: SITAGLIPTIN PHOSPHATE
  16. SIMVASTATIN [Concomitant]
     Active Substance: SIMVASTATIN
  17. GABAPENTIN [Concomitant]
     Active Substance: GABAPENTIN
  18. LOSARTAN [Concomitant]
     Active Substance: LOSARTAN
  19. TRAMADOL [Concomitant]
     Active Substance: TRAMADOL

REACTIONS (1)
  - Infection susceptibility increased [Not Recovered/Not Resolved]
